APPROVED DRUG PRODUCT: ONGLYZA
Active Ingredient: SAXAGLIPTIN HYDROCHLORIDE
Strength: EQ 5MG BASE **Federal Register determination that product was not discontinued or withdrawn for safety or effectiveness reasons**
Dosage Form/Route: TABLET;ORAL
Application: N022350 | Product #002
Applicant: ASTRAZENECA AB
Approved: Jul 31, 2009 | RLD: Yes | RS: No | Type: DISCN

PATENTS:
Patent 7951400 | Expires: Nov 30, 2028